FAERS Safety Report 6465494-9 (Version None)
Quarter: 2009Q4

REPORT INFORMATION
  Report Type: 
  Country: None (occurrence: None)
  Receive Date: 20091124
  Receipt Date: 20091112
  Transmission Date: 20100525
  Serious: Yes (Other)
  Sender: FDA-Public Use
  Company Number: 2009AL007322

PATIENT
  Sex: Female

DRUGS (1)
  1. FEVERALL [Suspect]

REACTIONS (3)
  - PHARYNGEAL OEDEMA [None]
  - REACTION TO DRUG EXCIPIENTS [None]
  - URTICARIA [None]
